FAERS Safety Report 24080005 (Version 1)
Quarter: 2024Q3

REPORT INFORMATION
  Report Type: Spontaneous
  Country: US (occurrence: None)
  Receive Date: 20240711
  Receipt Date: 20240711
  Transmission Date: 20241017
  Serious: Yes (Death)
  Sender: Public
  Company Number: None

PATIENT
  Age: 40 Year
  Sex: Male

DRUGS (2)
  1. FINASTERIDE [Suspect]
     Active Substance: FINASTERIDE
     Dosage: OTHER QUANTITY : 1 DOSAGE ;?FREQUENCY : DAILY;?
     Route: 048
  2. MINOXIDIL SOL MEN [Concomitant]
     Route: 061

REACTIONS (1)
  - Acute coronary syndrome [None]

NARRATIVE: CASE EVENT DATE: 20240423
